FAERS Safety Report 24456209 (Version 2)
Quarter: 2024Q4

REPORT INFORMATION
  Report Type: Spontaneous
  Country: US (occurrence: US)
  Receive Date: 20241017
  Receipt Date: 20241018
  Transmission Date: 20250115
  Serious: No
  Sender: ROCHE
  Company Number: US-ROCHE-3509598

PATIENT
  Age: 37 Year
  Sex: Female

DRUGS (1)
  1. RITUXAN [Suspect]
     Active Substance: RITUXIMAB
     Indication: Multiple sclerosis
     Dosage: PATIENT UNABLE TO RECALL DOSE/TIME OF LAST INFUSION
     Route: 042

REACTIONS (2)
  - Alopecia [Recovered/Resolved]
  - Off label use [Unknown]
